FAERS Safety Report 10068135 (Version 1)
Quarter: 2014Q2

REPORT INFORMATION
  Report Type: Spontaneous
  Country: US (occurrence: US)
  Receive Date: 20140409
  Receipt Date: 20140409
  Transmission Date: 20141212
  Serious: No
  Sender: FDA-Public Use
  Company Number: US-PFIZER INC-2014097014

PATIENT
  Age: 76 Year
  Sex: Female

DRUGS (2)
  1. CELEBREX [Suspect]
     Indication: ARTHRITIS
     Dosage: UNK
     Dates: start: 2013
  2. ADVIL [Concomitant]
     Indication: ARTHRITIS
     Dosage: UNK

REACTIONS (1)
  - Cardiac disorder [Unknown]
